FAERS Safety Report 13145425 (Version 2)
Quarter: 2017Q1

REPORT INFORMATION
  Report Type: Spontaneous
  Country: US (occurrence: US)
  Receive Date: 20170124
  Receipt Date: 20170130
  Transmission Date: 20170428
  Serious: No
  Sender: FDA-Public Use
  Company Number: US-PFIZER INC-2017032600

PATIENT
  Sex: Female

DRUGS (3)
  1. AZATHIOPRINE. [Concomitant]
     Active Substance: AZATHIOPRINE
     Dosage: UNK
  2. LYRICA [Suspect]
     Active Substance: PREGABALIN
     Indication: RHEUMATOID ARTHRITIS
     Dosage: 400 MG, DAILY (TAKING TWO 200 MG A DAY)
  3. METHOTREXATE SODIUM. [Concomitant]
     Active Substance: METHOTREXATE SODIUM
     Dosage: UNK

REACTIONS (14)
  - Product use issue [Unknown]
  - Pain [Unknown]
  - Joint swelling [Unknown]
  - Dry mouth [Unknown]
  - Somnolence [Unknown]
  - Asthenia [Unknown]
  - Alopecia [Unknown]
  - Madarosis [Unknown]
  - Peripheral swelling [Unknown]
  - Bruxism [Unknown]
  - Muscle spasms [Unknown]
  - Sleep paralysis [Unknown]
  - Vision blurred [Unknown]
  - Eye pruritus [Unknown]
